FAERS Safety Report 17858157 (Version 1)
Quarter: 2020Q2

REPORT INFORMATION
  Report Type: Spontaneous
  Country: US (occurrence: US)
  Receive Date: 20200604
  Receipt Date: 20200604
  Transmission Date: 20200714
  Serious: No
  Sender: FDA-Public Use
  Company Number: US-AUROBINDO-AUR-APL-2020-020216

PATIENT
  Sex: Male

DRUGS (2)
  1. ABACAVIR AND LAMIVUDINE 600MG+300MG TABLETS USP [Suspect]
     Active Substance: ABACAVIR\LAMIVUDINE
     Indication: HIV INFECTION
     Dosage: UNK
     Route: 065
  2. PANTOPRAZOLE [Concomitant]
     Active Substance: PANTOPRAZOLE
     Indication: GASTROOESOPHAGEAL REFLUX DISEASE
     Dosage: UNK, TWO TIMES A DAY
     Route: 065

REACTIONS (5)
  - Insomnia [Unknown]
  - Cough [Unknown]
  - Dizziness [Unknown]
  - Rash [Unknown]
  - Abdominal discomfort [Unknown]

NARRATIVE: CASE EVENT DATE: 202001
